FAERS Safety Report 6253546-8 (Version None)
Quarter: 2009Q3

REPORT INFORMATION
  Report Type: 
  Country: None (occurrence: None)
  Receive Date: 20090701
  Receipt Date: 20090626
  Transmission Date: 20100115
  Serious: Yes (Other)
  Sender: FDA-Public Use
  Company Number: US-AMGEN-KDL348321

PATIENT
  Sex: Male
  Weight: 61.3 kg

DRUGS (13)
  1. PROCRIT [Suspect]
     Indication: RENAL FAILURE CHRONIC
     Dates: end: 20090501
  2. CITRIC ACID [Concomitant]
  3. LIPITOR [Concomitant]
  4. NEXIUM [Concomitant]
  5. IRON [Concomitant]
     Dates: start: 20090301
  6. FLOMAX [Concomitant]
  7. LOVAZA [Concomitant]
  8. NPH INSULIN [Concomitant]
  9. HUMALOG [Concomitant]
  10. MULTI-VITAMINS [Concomitant]
  11. ACETAMINOPHEN AND HYDROCODONE BITARTRATE [Concomitant]
  12. MESALAMINE [Concomitant]
  13. COLESTIPOL HYDROCHLORIDE [Concomitant]

REACTIONS (4)
  - BONE MARROW FAILURE [None]
  - HAEMOGLOBIN DECREASED [None]
  - THERAPEUTIC RESPONSE DECREASED [None]
  - WEIGHT DECREASED [None]
